FAERS Safety Report 7630127-2 (Version None)
Quarter: 2011Q3

REPORT INFORMATION
  Report Type: 
  Country: None (occurrence: None)
  Receive Date: 20110722
  Receipt Date: 20110715
  Transmission Date: 20111222
  Serious: Yes (Hospitalization)
  Sender: FDA-Public Use
  Company Number: JP-B.I. PHARMACEUTICALS,INC./RIDGEFIELD-2011-BP-15183YA

PATIENT
  Sex: Male
  Weight: 46.4 kg

DRUGS (8)
  1. OLMESARTAN MEDOXOMIL [Concomitant]
     Indication: HYPERTENSION
     Dosage: 10 MG
     Route: 048
     Dates: start: 20060524
  2. MYSLEE (ZOLPIDEM) [Concomitant]
     Dates: start: 20110519
  3. DIGOXIN [Concomitant]
     Indication: CARDIAC FAILURE
     Dosage: 0.125 MG
     Route: 048
     Dates: start: 20060524
  4. ASP3550 [Suspect]
     Indication: PROSTATE CANCER
     Dosage: 240 MG
     Route: 058
     Dates: start: 20110316, end: 20110316
  5. ASP3550 [Suspect]
     Dosage: 480 MG
     Route: 058
     Dates: start: 20110413, end: 20110413
  6. TAMSULOSIN HCL [Suspect]
     Indication: BENIGN PROSTATIC HYPERPLASIA
     Dosage: 0.2 MG
     Route: 048
     Dates: start: 20100805
  7. AMLODIPINE BESYLATE [Concomitant]
     Indication: HYPERTENSION
     Dosage: 2.5 MG
     Route: 048
     Dates: start: 20060524
  8. BUP-4 (PROPIVERINE HYDROCHLORIDE) [Concomitant]
     Indication: HYPERTONIC BLADDER
     Dosage: 10 MG
     Route: 048
     Dates: start: 20100101

REACTIONS (2)
  - AORTIC VALVE STENOSIS [None]
  - ANGINA PECTORIS [None]
